FAERS Safety Report 5416984-9 (Version None)
Quarter: 2007Q3

REPORT INFORMATION
  Report Type: 
  Country: None (occurrence: None)
  Receive Date: 20070816
  Receipt Date: 20070810
  Transmission Date: 20080115
  Serious: Yes (Other)
  Sender: FDA-Public Use
  Company Number: JP-PFIZER INC-2007066896

PATIENT
  Age: 71 Year
  Sex: Male

DRUGS (1)
  1. ZOLOFT [Suspect]
     Dosage: DAILY DOSE:25MG-TEXT:TDD:25MG
     Route: 048

REACTIONS (2)
  - DELIRIUM [None]
  - RESTLESSNESS [None]
